FAERS Safety Report 10240192 (Version 5)
Quarter: 2014Q4

REPORT INFORMATION
  Report Type: Spontaneous
  Country: US (occurrence: US)
  Receive Date: 20140617
  Receipt Date: 20141105
  Transmission Date: 20150528
  Serious: No
  Sender: FDA-Public Use
  Company Number: 2014SP003309

PATIENT
  Age: 49 Year
  Sex: Female
  Weight: 108 kg

DRUGS (8)
  1. LAMICTAL [Concomitant]
     Active Substance: LAMOTRIGINE
     Indication: SCHIZOPHRENIA
     Dates: start: 2000
  2. SEROQUEL [Concomitant]
     Active Substance: QUETIAPINE FUMARATE
  3. LAMICTAL [Concomitant]
     Active Substance: LAMOTRIGINE
     Indication: HYPOMANIA
     Dates: start: 2000
  4. TRAZODONE [Suspect]
     Active Substance: TRAZODONE HYDROCHLORIDE
     Indication: INSOMNIA
     Dates: start: 2012, end: 201404
  5. LAMICTAL [Concomitant]
     Active Substance: LAMOTRIGINE
     Indication: DEPRESSION
     Dates: start: 2000
  6. LATUDA [Suspect]
     Active Substance: LURASIDONE HYDROCHLORIDE
     Indication: BIPOLAR DISORDER
     Route: 048
  7. CLONAZEPAM. [Concomitant]
     Active Substance: CLONAZEPAM
     Indication: ANXIETY
     Dates: start: 2000
  8. LATUDA [Suspect]
     Active Substance: LURASIDONE HYDROCHLORIDE
     Indication: BIPOLAR DISORDER
     Route: 048

REACTIONS (1)
  - Electrocardiogram QT interval abnormal [Recovered/Resolved]

NARRATIVE: CASE EVENT DATE: 20140325
